FAERS Safety Report 20782998 (Version 1)
Quarter: 2022Q2

REPORT INFORMATION
  Report Type: Spontaneous
  Country: CA (occurrence: CA)
  Receive Date: 20220504
  Receipt Date: 20220504
  Transmission Date: 20220720
  Serious: Yes (Hospitalization, Other)
  Sender: FDA-Public Use
  Company Number: CA-TEVA-2022-CA-2032281

PATIENT
  Sex: Male

DRUGS (2)
  1. MORPHINE SULFATE [Suspect]
     Active Substance: MORPHINE SULFATE
     Indication: Product used for unknown indication
     Route: 048
  2. OXYCONTIN [Suspect]
     Active Substance: OXYCODONE HYDROCHLORIDE
     Indication: Neoplasm malignant
     Route: 048

REACTIONS (9)
  - Cerebral haemorrhage [Unknown]
  - Drug dependence [Unknown]
  - Eye injury [Unknown]
  - Fall [Unknown]
  - Migraine [Unknown]
  - Nervous system disorder [Unknown]
  - Seizure [Unknown]
  - Skeletal injury [Unknown]
  - Systemic toxicity [Unknown]
